FAERS Safety Report 17246504 (Version 1)
Quarter: 2020Q1

REPORT INFORMATION
  Report Type: Spontaneous
  Country: US (occurrence: US)
  Receive Date: 20200107
  Receipt Date: 20200107
  Transmission Date: 20200409
  Serious: Yes (Disabling, Other)
  Sender: FDA-Public Use
  Company Number: None

PATIENT
  Age: 31 Year
  Sex: Female
  Weight: 56.25 kg

DRUGS (6)
  1. VENLAFAXINE HCL 150 ER MG [Suspect]
     Active Substance: VENLAFAXINE HYDROCHLORIDE
     Indication: OBSESSIVE-COMPULSIVE DISORDER
     Dosage: ?          QUANTITY:1 CAPSULE(S);?
     Route: 048
     Dates: start: 20031201
  2. MIRTZAPINE [Concomitant]
  3. VENLAFAXINE HCL 150MG ER CAP [Suspect]
     Active Substance: VENLAFAXINE HYDROCHLORIDE
     Indication: DEPRESSION
     Dosage: ?          QUANTITY:1 CAPSULE(S);?
     Route: 048
     Dates: start: 20031201, end: 20200106
  4. VENLAFAXINE HCL 150 ER MG [Suspect]
     Active Substance: VENLAFAXINE HYDROCHLORIDE
     Indication: DEPRESSION
     Dosage: ?          QUANTITY:1 CAPSULE(S);?
     Route: 048
     Dates: start: 20031201
  5. ALPRALOZAM [Concomitant]
  6. VENLAFAXINE HCL 150 ER MG [Suspect]
     Active Substance: VENLAFAXINE HYDROCHLORIDE
     Indication: ANXIETY
     Dosage: ?          QUANTITY:1 CAPSULE(S);?
     Route: 048
     Dates: start: 20031201

REACTIONS (6)
  - Feeling abnormal [None]
  - Product formulation issue [None]
  - Chest discomfort [None]
  - Dyspnoea [None]
  - Drug ineffective [None]
  - Palpitations [None]

NARRATIVE: CASE EVENT DATE: 20191107
